FAERS Safety Report 18117426 (Version 1)
Quarter: 2020Q3

REPORT INFORMATION
  Report Type: Spontaneous
  Country: RS (occurrence: RS)
  Receive Date: 20200806
  Receipt Date: 20200806
  Transmission Date: 20201103
  Serious: Yes (Life-Threatening, Other)
  Sender: FDA-Public Use
  Company Number: RS-ROCHE-2629756

PATIENT
  Age: 74 Year
  Sex: Male

DRUGS (2)
  1. OBINUTUZUMAB. [Suspect]
     Active Substance: OBINUTUZUMAB
     Indication: CHRONIC LYMPHOCYTIC LEUKAEMIA
     Dosage: NUMBER OF CYCLES RECEIVED 1
     Route: 042
     Dates: start: 20190815
  2. CHLORAMBUCIL [Suspect]
     Active Substance: CHLORAMBUCIL
     Indication: CHRONIC LYMPHOCYTIC LEUKAEMIA
     Dosage: NUMBER OF CYCLES RECEIVED 1, 100+900 MG
     Route: 065
     Dates: start: 20190815

REACTIONS (4)
  - Toxicity to various agents [Unknown]
  - Infection [Unknown]
  - Infusion related reaction [Unknown]
  - Pneumonia [Unknown]
